FAERS Safety Report 7129674-1 (Version None)
Quarter: 2010Q4

REPORT INFORMATION
  Report Type: 
  Country: None (occurrence: None)
  Receive Date: 20101130
  Receipt Date: 20101117
  Transmission Date: 20110411
  Serious: Yes (Other)
  Sender: FDA-Public Use
  Company Number: GB-MYLANLABS-2010S1019328

PATIENT
  Sex: Male

DRUGS (10)
  1. TOPIRAMATE [Suspect]
     Indication: EPILEPSY
     Route: 048
  2. TOPIRAMATE [Suspect]
     Route: 048
  3. TOPIRAMATE [Suspect]
     Route: 048
  4. TOPIRAMATE [Suspect]
     Route: 048
     Dates: start: 20100201
  5. TOPIRAMATE [Concomitant]
     Indication: GENERALISED NON-CONVULSIVE EPILEPSY
     Dates: start: 20100707
  6. CITALOPRAM [Concomitant]
     Indication: DEPRESSION
     Dates: start: 20100812
  7. SOFRADEX [Concomitant]
     Indication: CHOLESTEATOMA
     Dates: start: 20100902
  8. LAMOTRIGINE [Concomitant]
     Indication: PRODUCT USED FOR UNKNOWN INDICATION
     Dates: start: 20010925
  9. INFLUENZA VACCINE [Concomitant]
     Indication: PRODUCT USED FOR UNKNOWN INDICATION
     Dates: start: 20011015
  10. AMOXICILLIN [Concomitant]
     Indication: PRODUCT USED FOR UNKNOWN INDICATION
     Dates: start: 20100226

REACTIONS (2)
  - EPILEPSY [None]
  - INCORRECT DOSE ADMINISTERED [None]
